FAERS Safety Report 13226387 (Version 1)
Quarter: 2017Q1

REPORT INFORMATION
  Report Type: Spontaneous
  Country: US (occurrence: US)
  Receive Date: 20170213
  Receipt Date: 20170213
  Transmission Date: 20170428
  Serious: Yes (Hospitalization, Other)
  Sender: FDA-Public Use
  Company Number: US-PFIZER INC-2017054735

PATIENT
  Age: 69 Year
  Sex: Male
  Weight: 91 kg

DRUGS (23)
  1. LUPRON [Suspect]
     Active Substance: LEUPROLIDE ACETATE
     Indication: PROSTATE CANCER
     Dosage: UNK, MONTHLY
     Route: 030
     Dates: start: 201609
  2. DIPHENOXYLATE/ATROPINE [Concomitant]
     Active Substance: ATROPINE\DIPHENOXYLATE
     Dosage: UNK [ATROPINE SULFATE: 2.5 MG]/[DIPHENOXYLATE HYDROCHLORIDE: 0.025 MG]
     Dates: start: 20160318
  3. FLOMAX [Concomitant]
     Active Substance: TAMSULOSIN HYDROCHLORIDE
     Dosage: 0.4 MG, UNK
     Dates: start: 20151013
  4. TRAMADOL HCL [Concomitant]
     Active Substance: TRAMADOL HYDROCHLORIDE
     Dosage: UNK
     Dates: start: 20160425
  5. MUPIROCIN. [Concomitant]
     Active Substance: MUPIROCIN
     Dosage: UNK
  6. DILTIAZEM HCL [Concomitant]
     Active Substance: DILTIAZEM HYDROCHLORIDE
     Dosage: UNK
  7. JAKAFI [Suspect]
     Active Substance: RUXOLITINIB
     Indication: NEOPLASM
     Dosage: 10 MG, 2X/DAY
     Route: 048
     Dates: start: 20151013
  8. CARTIA XT [Concomitant]
     Active Substance: DILTIAZEM HYDROCHLORIDE
     Dosage: 240 MG, UNK
     Dates: start: 20151014
  9. PANTOPRAZOLE SODIUM. [Concomitant]
     Active Substance: PANTOPRAZOLE SODIUM
     Dosage: 40 MG, UNK
     Dates: start: 20150107
  10. ALLOPURINOL. [Concomitant]
     Active Substance: ALLOPURINOL
  11. VENLAFAXINE HCL [Suspect]
     Active Substance: VENLAFAXINE HYDROCHLORIDE
     Indication: HOT FLUSH
  12. INDOMETHACIN. [Suspect]
     Active Substance: INDOMETHACIN
     Indication: GOUT
     Dosage: UNK
  13. IMBRUVICA [Suspect]
     Active Substance: IBRUTINIB
     Dosage: 140 MG, 3X/DAY
     Route: 048
     Dates: start: 20160219, end: 20160729
  14. IMBRUVICA [Suspect]
     Active Substance: IBRUTINIB
     Dosage: 140 MG, DAILY
     Route: 048
  15. LEVOFLOXACIN. [Concomitant]
     Active Substance: LEVOFLOXACIN
     Dosage: 500 MG, UNK
     Dates: start: 20160414
  16. XANAX [Concomitant]
     Active Substance: ALPRAZOLAM
     Dosage: 0.5 MG, UNK
  17. JAKAFI [Suspect]
     Active Substance: RUXOLITINIB
     Indication: MYELOFIBROSIS
     Dosage: 15 MG, 2X/DAY
     Route: 048
     Dates: start: 201412, end: 201511
  18. JAKAFI [Suspect]
     Active Substance: RUXOLITINIB
     Dosage: 10 MG, 2X/DAY
     Route: 048
     Dates: start: 20160801
  19. CARDIZEM [Concomitant]
     Active Substance: DILTIAZEM HYDROCHLORIDE
     Dosage: UNK
  20. ALPRAZOLAM. [Concomitant]
     Active Substance: ALPRAZOLAM
     Dosage: 0.25 MG, UNK
     Dates: start: 20150110
  21. FUROSEMIDE. [Concomitant]
     Active Substance: FUROSEMIDE
     Dosage: 20 MG, UNK
     Dates: start: 20160425
  22. JAKAFI [Suspect]
     Active Substance: RUXOLITINIB
     Dosage: 5 MG, 2X/DAY
     Route: 048
     Dates: start: 201511
  23. IMBRUVICA [Suspect]
     Active Substance: IBRUTINIB
     Dosage: UNK, ALTERNATE DAY
     Route: 048
     Dates: start: 20160804

REACTIONS (30)
  - Thrombocytopenia [Unknown]
  - Melaena [Unknown]
  - Lymphadenopathy [Unknown]
  - Night sweats [Unknown]
  - Condition aggravated [Unknown]
  - Weight increased [Unknown]
  - Gastrointestinal haemorrhage [Unknown]
  - Skin cancer [Unknown]
  - Platelet count decreased [Recovering/Resolving]
  - Blood uric acid increased [Unknown]
  - Basal cell carcinoma [Unknown]
  - Muscle spasms [Unknown]
  - Haemoglobin decreased [Unknown]
  - Disease recurrence [Unknown]
  - Hot flush [Not Recovered/Not Resolved]
  - Chest pain [Recovered/Resolved]
  - Fatigue [Unknown]
  - Oedema peripheral [Not Recovered/Not Resolved]
  - Ulcer [Unknown]
  - Mass [Not Recovered/Not Resolved]
  - Dyspnoea [Recovered/Resolved]
  - Prostate cancer recurrent [Unknown]
  - White blood cell count decreased [Unknown]
  - Pain in extremity [Unknown]
  - Gout [Recovering/Resolving]
  - Oedema [Not Recovered/Not Resolved]
  - Ear pain [Unknown]
  - Iron deficiency anaemia [Unknown]
  - Diarrhoea [Unknown]
  - Prostatic specific antigen increased [Unknown]

NARRATIVE: CASE EVENT DATE: 2016
